FAERS Safety Report 6597683-7 (Version None)
Quarter: 2010Q1

REPORT INFORMATION
  Report Type: 
  Country: None (occurrence: None)
  Receive Date: 20100216
  Receipt Date: 20100203
  Transmission Date: 20100710
  Serious: Yes (Congenital Anomaly, Other)
  Sender: FDA-Public Use
  Company Number: 230002L10MKD

PATIENT
  Age: 11 Year
  Sex: Female

DRUGS (1)
  1. INTERFERON [Suspect]
     Indication: MULTIPLE SCLEROSIS
     Dosage: TRANSPLACENTAL
     Route: 064

REACTIONS (17)
  - APLASIA [None]
  - ATRIAL SEPTAL DEFECT [None]
  - COLOBOMA [None]
  - CONGENITAL CYSTIC KIDNEY DISEASE [None]
  - CONGENITAL OPTIC NERVE ANOMALY [None]
  - CONGENITAL RENAL DISORDER [None]
  - GENE MUTATION [None]
  - MATERNAL DRUGS AFFECTING FOETUS [None]
  - MICROPHTHALMOS [None]
  - MULTIPLE CONGENITAL ABNORMALITIES [None]
  - NYSTAGMUS [None]
  - ORBITAL CYST [None]
  - RENAL DYSPLASIA [None]
  - RENAL FAILURE CHRONIC [None]
  - RENAL HYPOPLASIA [None]
  - RETINAL ANOMALY CONGENITAL [None]
  - STRABISMUS [None]
